FAERS Safety Report 21988963 (Version 2)
Quarter: 2023Q1

REPORT INFORMATION
  Report Type: Spontaneous
  Country: PL (occurrence: PL)
  Receive Date: 20230214
  Receipt Date: 20230329
  Transmission Date: 20230418
  Serious: Yes (Other)
  Sender: FDA-Public Use
  Company Number: PL-SA-2022SA506436

PATIENT
  Age: 41 Year
  Sex: Male

DRUGS (14)
  1. ATORVASTATIN [Interacting]
     Active Substance: ATORVASTATIN
     Indication: Dyslipidaemia
     Dosage: 40 MILLIGRAM, ONCE A DAY
     Route: 065
  2. IBUPROFEN [Interacting]
     Active Substance: IBUPROFEN
     Indication: Visceral pain
     Dosage: 1800 MILLIGRAM, ONCE A DAY
     Route: 065
  3. IBUPROFEN [Interacting]
     Active Substance: IBUPROFEN
     Indication: Pancreatitis chronic
  4. TRAMADOL [Interacting]
     Active Substance: TRAMADOL
     Indication: Visceral pain
     Dosage: 200 MILLIGRAM, ONCE A DAY
     Route: 065
  5. TRAMADOL [Interacting]
     Active Substance: TRAMADOL
     Dosage: 300 MILLIGRAM, ONCE A DAY
     Route: 065
  6. QUETIAPINE [Interacting]
     Active Substance: QUETIAPINE
     Indication: Anxiety
     Dosage: 100 MILLIGRAM, ONCE A DAY
     Route: 065
  7. QUETIAPINE [Interacting]
     Active Substance: QUETIAPINE
     Indication: Sleep disorder
  8. OMEPRAZOLE [Interacting]
     Active Substance: OMEPRAZOLE
     Indication: Abdominal pain upper
     Dosage: 40 MILLIGRAM, ONCE A DAY
     Route: 048
  9. OMEPRAZOLE [Interacting]
     Active Substance: OMEPRAZOLE
     Indication: Pancreatitis chronic
  10. OMEPRAZOLE [Interacting]
     Active Substance: OMEPRAZOLE
     Indication: Abdominal pain upper
  11. PREGABALIN [Concomitant]
     Active Substance: PREGABALIN
     Indication: Product used for unknown indication
     Dosage: 75 MILLIGRAM, ONCE A DAY (PM)
     Route: 065
  12. METAMIZOLE [Concomitant]
     Active Substance: METAMIZOLE
     Indication: Visceral pain
     Dosage: 1000 MILLIGRAM (UP TO A MAXIMUM DOSE OF 5000 MG/D IF HIS PAIN EXACERBATED)
     Route: 065
  13. BUPRENORPHINE [Concomitant]
     Active Substance: BUPRENORPHINE
     Indication: Visceral pain
     Dosage: 17.5 MICROGRAM, 1 HOUR 1QH (NEW PATCH APPLIED EVERY 72 HOURS)
     Route: 065
  14. PITAVASTATIN [Concomitant]
     Active Substance: PITAVASTATIN
     Indication: Product used for unknown indication
     Dosage: UNK
     Route: 065

REACTIONS (10)
  - Seizure [Recovered/Resolved]
  - Visceral pain [Recovering/Resolving]
  - Anxiety [Recovering/Resolving]
  - Insomnia [Recovering/Resolving]
  - Condition aggravated [Recovering/Resolving]
  - Sleep disorder [Recovering/Resolving]
  - Drug interaction [Recovering/Resolving]
  - Inadequate analgesia [Unknown]
  - Pain [Recovering/Resolving]
  - Drug ineffective [Unknown]
